FAERS Safety Report 6375984-5 (Version None)
Quarter: 2009Q3

REPORT INFORMATION
  Report Type: 
  Country: None (occurrence: None)
  Receive Date: 20090921
  Receipt Date: 20090907
  Transmission Date: 20100115
  Serious: Yes (Disabling)
  Sender: FDA-Public Use
  Company Number: DSU-2009-01901

PATIENT
  Age: 85 Year
  Sex: Male
  Weight: 68 kg

DRUGS (1)
  1. OLMESARTAN MEDOXOMIL [Suspect]
     Indication: DRUG USE FOR UNKNOWN INDICATION
     Dosage: PER ORAL
     Route: 048
     Dates: start: 20090815, end: 20090816

REACTIONS (5)
  - CONJUNCTIVITIS [None]
  - EYE ALLERGY [None]
  - FEELING HOT [None]
  - MALAISE [None]
  - PARAESTHESIA [None]
